FAERS Safety Report 8907692 (Version 1)
Quarter: 2012Q4

REPORT INFORMATION
  Report Type: 
  Country: FR (occurrence: FR)
  Receive Date: 20121114
  Receipt Date: 20121114
  Transmission Date: 20130627
  Serious: Yes (Life-Threatening, Hospitalization)
  Sender: FDA-Public Use
  Company Number: FR-PFIZER INC-2012282198

PATIENT
  Age: 66 Year
  Sex: Male

DRUGS (3)
  1. SOLU-MEDROL [Suspect]
     Indication: BRAIN LESION
     Dosage: 120 mg, 2x/day
     Route: 042
     Dates: start: 201209, end: 20120919
  2. MEDROL [Suspect]
     Indication: BRAIN LESION
     Dosage: 100 mg in the morning and 50 mg in the evening
     Route: 048
     Dates: start: 20120920
  3. IRESSA [Suspect]
     Indication: NON-SMALL CELL LUNG CANCER
     Dosage: 250 mg, 1x/day
     Route: 048
     Dates: start: 20120824, end: 20121003

REACTIONS (3)
  - Large intestine perforation [Unknown]
  - Hepatocellular injury [Unknown]
  - Diarrhoea [Unknown]
